FAERS Safety Report 5701770-2 (Version None)
Quarter: 2008Q2

REPORT INFORMATION
  Report Type: 
  Country: None (occurrence: None)
  Receive Date: 20080410
  Receipt Date: 20080410
  Transmission Date: 20081010
  Serious: Yes (Hospitalization, Disabling)
  Sender: FDA-Public Use
  Company Number: None

PATIENT
  Sex: Male
  Weight: 64.4108 kg

DRUGS (1)
  1. LYRICA [Suspect]
     Indication: FIBROMYALGIA
     Dosage: 1 CAPSULE 2X A DAY 150 MG. EACH CAP.

REACTIONS (4)
  - BLINDNESS [None]
  - PAPILLOEDEMA [None]
  - SCOTOMA [None]
  - VISION BLURRED [None]
